FAERS Safety Report 4609590-7 (Version None)
Quarter: 2005Q1

REPORT INFORMATION
  Report Type: 
  Country: None (occurrence: None)
  Receive Date: 20050314
  Receipt Date: 20050314
  Transmission Date: 20050727
  Serious: No
  Sender: FDA-Public Use
  Company Number: None

PATIENT
  Age: 67 Year
  Sex: Female
  Weight: 71.2147 kg

DRUGS (9)
  1. REMICADE [Suspect]
     Indication: RHEUMATOID ARTHRITIS
     Dosage: 215 MG IV
     Route: 042
     Dates: start: 20040827
  2. REMICADE [Suspect]
     Indication: RHEUMATOID ARTHRITIS
     Dosage: 215 MG IV
     Route: 042
     Dates: start: 20040914
  3. REMICADE [Suspect]
     Indication: RHEUMATOID ARTHRITIS
     Dosage: 215 MG IV
     Route: 042
     Dates: start: 20041008
  4. REMICADE [Suspect]
     Indication: RHEUMATOID ARTHRITIS
     Dosage: 215 MG IV
     Route: 042
     Dates: start: 20041203
  5. COUMADIN [Concomitant]
  6. NORVASC [Concomitant]
  7. ASPIRIN [Concomitant]
  8. DYAZIDE [Concomitant]
  9. IRON [Concomitant]

REACTIONS (1)
  - URTICARIA [None]
